FAERS Safety Report 14109767 (Version 2)
Quarter: 2017Q4

REPORT INFORMATION
  Report Type: Spontaneous
  Country: JP (occurrence: JP)
  Receive Date: 20171020
  Receipt Date: 20171027
  Transmission Date: 20180321
  Serious: Yes (Other)
  Sender: FDA-Public Use
  Company Number: JP-BAXTER-2017BAX035781

PATIENT
  Age: 9 Year
  Sex: Male

DRUGS (15)
  1. CELLTOP 50 MG, CAPSULE [Suspect]
     Active Substance: ETOPOSIDE
     Route: 065
  2. RITUXIMAB. [Suspect]
     Active Substance: RITUXIMAB
     Indication: BURKITT^S LEUKAEMIA
     Dosage: R-ICE REGIMEN?GENETICAL RECOMBINATION
     Route: 065
  3. CARBOPLATIN. [Suspect]
     Active Substance: CARBOPLATIN
     Indication: BURKITT^S LEUKAEMIA
     Dosage: R-ICE REGIMEN
     Route: 065
  4. CYTARABINE. [Suspect]
     Active Substance: CYTARABINE
     Indication: BURKITT^S LEUKAEMIA
     Dosage: R-CYVE REGIMEN
     Route: 065
  5. CLOFARABINE. [Suspect]
     Active Substance: CLOFARABINE
     Indication: BURKITT^S LEUKAEMIA
     Route: 065
  6. CELLTOP 50 MG, CAPSULE [Suspect]
     Active Substance: ETOPOSIDE
     Indication: LEUKAEMIA RECURRENT
     Dosage: R-CYVE REGIMEN
     Route: 065
  7. IFEX [Suspect]
     Active Substance: IFOSFAMIDE
     Indication: LEUKAEMIA RECURRENT
  8. CLOFARABINE. [Suspect]
     Active Substance: CLOFARABINE
     Indication: LEUKAEMIA RECURRENT
  9. RITUXIMAB. [Suspect]
     Active Substance: RITUXIMAB
     Indication: LEUKAEMIA RECURRENT
     Dosage: R-CYVE REGIMEN
     Route: 065
  10. ENDOXAN LYOPHILISAT [Suspect]
     Active Substance: CYCLOPHOSPHAMIDE
     Indication: LEUKAEMIA RECURRENT
  11. CELLTOP 50 MG, CAPSULE [Suspect]
     Active Substance: ETOPOSIDE
     Indication: BURKITT^S LEUKAEMIA
     Dosage: R-ICE REGIMEN
     Route: 065
  12. CARBOPLATIN. [Suspect]
     Active Substance: CARBOPLATIN
     Indication: LEUKAEMIA RECURRENT
  13. IFEX [Suspect]
     Active Substance: IFOSFAMIDE
     Indication: BURKITT^S LEUKAEMIA
     Dosage: R-ICE REGIMEN
     Route: 065
  14. ENDOXAN LYOPHILISAT [Suspect]
     Active Substance: CYCLOPHOSPHAMIDE
     Indication: BURKITT^S LEUKAEMIA
     Route: 065
  15. CYTARABINE. [Suspect]
     Active Substance: CYTARABINE
     Indication: LEUKAEMIA RECURRENT

REACTIONS (2)
  - Bone marrow failure [Unknown]
  - Pancytopenia [Unknown]
